FAERS Safety Report 18306322 (Version 2)
Quarter: 2020Q4

REPORT INFORMATION
  Report Type: Report from Study
  Country: PL (occurrence: PL)
  Receive Date: 20200923
  Receipt Date: 20201016
  Transmission Date: 20210113
  Serious: Yes (Hospitalization, Other)
  Sender: FDA-Public Use
  Company Number: PL-BRISTOL-MYERS SQUIBB COMPANY-BMS-2020-006813

PATIENT
  Age: 54 Year
  Sex: Male
  Weight: 55 kg

DRUGS (5)
  1. NIVOLUMAB [Suspect]
     Active Substance: NIVOLUMAB
     Indication: OESOPHAGEAL SQUAMOUS CELL CARCINOMA
     Dosage: 165 MILLIGRAM
     Route: 065
     Dates: start: 20180820, end: 20180820
  2. IPILIMUMAB [Suspect]
     Active Substance: IPILIMUMAB
     Dosage: 70 MILLIGRAM
     Route: 065
     Dates: start: 20190729, end: 20190729
  3. HEPA-MERZ [ORNITHINE ASPARTATE] [Concomitant]
     Indication: PRODUCT USED FOR UNKNOWN INDICATION
     Dosage: 6 GRAM
     Route: 048
     Dates: start: 20190902, end: 20190920
  4. NIVOLUMAB [Suspect]
     Active Substance: NIVOLUMAB
     Dosage: 204 MILLIGRAM
     Route: 065
     Dates: start: 20190909, end: 20190909
  5. IPILIMUMAB [Suspect]
     Active Substance: IPILIMUMAB
     Indication: OESOPHAGEAL SQUAMOUS CELL CARCINOMA
     Dosage: 55 MILLIGRAM
     Route: 065
     Dates: start: 20180820, end: 20180820

REACTIONS (2)
  - Hyponatraemia [Recovered/Resolved with Sequelae]
  - Vomiting [Recovered/Resolved]

NARRATIVE: CASE EVENT DATE: 20190920
